FAERS Safety Report 6803412-1 (Version None)
Quarter: 2010Q2

REPORT INFORMATION
  Report Type: 
  Country: None (occurrence: None)
  Receive Date: 20100628
  Receipt Date: 20100616
  Transmission Date: 20101027
  Serious: Yes (Hospitalization)
  Sender: FDA-Public Use
  Company Number: GB-ROCHE-710358

PATIENT
  Sex: Male
  Weight: 96.1 kg

DRUGS (7)
  1. BEVACIZUMAB [Suspect]
     Indication: RENAL CELL CARCINOMA
     Dosage: FREQUENCY REPORTED AS FORTNIGHTLY
     Route: 042
     Dates: start: 20100401, end: 20100616
  2. TEMSIROLIMUS [Suspect]
     Route: 065
     Dates: start: 20100401, end: 20100616
  3. RAMIPRIL [Concomitant]
     Indication: HYPERTENSION
     Route: 048
     Dates: start: 20100610
  4. AMLODIPINE [Concomitant]
     Indication: HYPERTENSION
     Route: 048
     Dates: start: 20100513
  5. VENTOLIN DS [Concomitant]
     Dosage: AS REQUIRED
     Route: 048
  6. CHLORPHENAMINE [Concomitant]
     Indication: RASH
     Route: 048
     Dates: start: 20100408
  7. ACETAMINOPHEN [Concomitant]
     Indication: HEADACHE
     Dosage: AS REQUIRED
     Route: 048
     Dates: start: 20100510

REACTIONS (1)
  - MUSCULAR WEAKNESS [None]
